FAERS Safety Report 19183474 (Version 5)
Quarter: 2025Q3

REPORT INFORMATION
  Report Type: Report from Study
  Country: US (occurrence: US)
  Receive Date: 20210427
  Receipt Date: 20250917
  Transmission Date: 20251020
  Serious: Yes (Hospitalization, Other)
  Sender: TAKEDA
  Company Number: US-TAKEDA-2021TUS024897

PATIENT
  Sex: Female
  Weight: 90.24 kg

DRUGS (20)
  1. IXAZOMIB [Suspect]
     Active Substance: IXAZOMIB
     Indication: Plasma cell myeloma
     Dosage: 4 MILLIGRAM, QD
     Dates: start: 20200504
  2. IXAZOMIB [Suspect]
     Active Substance: IXAZOMIB
     Dosage: 4 MILLIGRAM, 1/WEEK
     Dates: start: 202312
  3. IXAZOMIB [Suspect]
     Active Substance: IXAZOMIB
     Dosage: 4 MILLIGRAM, 1/WEEK
  4. IXAZOMIB [Suspect]
     Active Substance: IXAZOMIB
     Dosage: 4 MILLIGRAM, 1/WEEK
  5. VELCADE [Suspect]
     Active Substance: BORTEZOMIB
     Indication: Plasma cell myeloma
  6. REVLIMID [Suspect]
     Active Substance: LENALIDOMIDE
     Indication: Plasma cell myeloma
     Dosage: 25 MILLIGRAM, QD
     Dates: start: 201908
  7. REVLIMID [Suspect]
     Active Substance: LENALIDOMIDE
  8. POMALYST [Suspect]
     Active Substance: POMALIDOMIDE
     Indication: Product used for unknown indication
  9. LENALIDOMIDE [Concomitant]
     Active Substance: LENALIDOMIDE
  10. ONDANSETRON HYDROCHLORIDE [Concomitant]
     Active Substance: ONDANSETRON HYDROCHLORIDE
  11. GABAPENTIN [Concomitant]
     Active Substance: GABAPENTIN
  12. POTASSIUM CHLORIDE [Concomitant]
     Active Substance: POTASSIUM CHLORIDE
  13. INSULIN LISPRO JUNIOR KWIKPEN [Concomitant]
     Active Substance: INSULIN LISPRO
  14. DEXAMETHASONE [Concomitant]
     Active Substance: DEXAMETHASONE
  15. ASPIRIN [Concomitant]
     Active Substance: ASPIRIN
  16. TRESIBA [Concomitant]
     Active Substance: INSULIN DEGLUDEC
  17. LISINOPRIL [Concomitant]
     Active Substance: LISINOPRIL
  18. FARXIGA [Concomitant]
     Active Substance: DAPAGLIFLOZIN PROPANEDIOL
  19. GLIPIZIDE [Concomitant]
     Active Substance: GLIPIZIDE
  20. ACYCLOVIR [Concomitant]
     Active Substance: ACYCLOVIR

REACTIONS (12)
  - Inguinal hernia [Unknown]
  - Plasma cell myeloma recurrent [Unknown]
  - Neck pain [Unknown]
  - Pain [Unknown]
  - White blood cell count decreased [Unknown]
  - Diarrhoea [Unknown]
  - Vomiting [Unknown]
  - Nausea [Unknown]
  - Dry skin [Unknown]
  - Paraesthesia [Unknown]
  - Full blood count increased [Unknown]
  - Arteriosclerosis [Unknown]
